FAERS Safety Report 9705236 (Version 3)
Quarter: 2014Q2

REPORT INFORMATION
  Report Type: Spontaneous
  Country: US (occurrence: US)
  Receive Date: 20131122
  Receipt Date: 20140521
  Transmission Date: 20141212
  Serious: Yes (Hospitalization, Other)
  Sender: FDA-Public Use
  Company Number: US-BAYER-2013-141249

PATIENT
  Age: 25 Year
  Sex: Female
  Weight: 74.83 kg

DRUGS (2)
  1. MIRENA [Suspect]
     Indication: CONTRACEPTION
     Dosage: 20 MCG/24HR, CONT
     Route: 015
     Dates: start: 20091029, end: 20111004
  2. CLARITIN [Concomitant]

REACTIONS (9)
  - Uterine perforation [None]
  - Abdominal pain [None]
  - Menstruation irregular [None]
  - Device difficult to use [None]
  - Injury [None]
  - Emotional distress [None]
  - Device breakage [None]
  - Depression [None]
  - Dyspareunia [None]
